FAERS Safety Report 8945368 (Version 1)
Quarter: 2012Q4

REPORT INFORMATION
  Report Type: 
  Country: US (occurrence: US)
  Receive Date: 20121205
  Receipt Date: 20121205
  Transmission Date: 20130627
  Serious: No
  Sender: FDA-Public Use
  Company Number: US-009507513-1211USA012478

PATIENT
  Age: 61 Year
  Sex: Female

DRUGS (2)
  1. ZETIA [Suspect]
     Indication: BLOOD CHOLESTEROL INCREASED
     Dosage: UNK
     Route: 048
  2. ZETIA [Suspect]
     Dosage: 10 mg, qd
     Route: 048
     Dates: start: 201211

REACTIONS (4)
  - Rhinorrhoea [Recovered/Resolved]
  - Rhinitis allergic [Recovered/Resolved]
  - Rhinorrhoea [Unknown]
  - Rhinitis allergic [Unknown]
